FAERS Safety Report 26115831 (Version 2)
Quarter: 2025Q4

REPORT INFORMATION
  Report Type: Spontaneous
  Country: US (occurrence: US)
  Receive Date: 20251203
  Receipt Date: 20251203
  Transmission Date: 20260117
  Serious: Yes (Other)
  Sender: GILEAD
  Company Number: US-GILEAD-2025-0738842

PATIENT
  Age: 36 Year
  Sex: Female

DRUGS (10)
  1. LIVDELZI [Suspect]
     Active Substance: SELADELPAR LYSINE
     Indication: Primary biliary cholangitis
     Dosage: TAKE ONE CAPSULE (10 MG DAILY)
     Route: 048
     Dates: start: 202504
  2. TYLENOL [Concomitant]
     Active Substance: ACETAMINOPHEN
     Dosage: 650 MG
     Route: 048
  3. WELLBUTRIN XL [Concomitant]
     Active Substance: BUPROPION HYDROCHLORIDE
     Dosage: 150 MG TAKE 1 TABLET
  4. CALCIUM ACETATE [Concomitant]
     Active Substance: CALCIUM ACETATE
     Dosage: TAKE 1000 MG BY MO
  5. VITAMIN D3 [Concomitant]
     Active Substance: CHOLECALCIFEROL
     Dosage: TAKE 1000 UNITS
  6. SYNTHROID [Concomitant]
     Active Substance: LEVOTHYROXINE SODIUM
     Dosage: TAKE 150 MCG BY MO
  7. PHENTERMINE [Concomitant]
     Active Substance: PHENTERMINE
     Dosage: 8 MG TAB
  8. SKYRIZI [Concomitant]
     Active Substance: RISANKIZUMAB-RZAA
  9. SELENIUM [Concomitant]
     Active Substance: SELENIUM
     Dosage: TAKE BY MOUTH DAILY
  10. MAGNESIUM [Concomitant]
     Active Substance: MAGNESIUM

REACTIONS (2)
  - Spinal fracture [Unknown]
  - Hepatic steatosis [Unknown]
